FAERS Safety Report 10270123 (Version 7)
Quarter: 2019Q2

REPORT INFORMATION
  Report Type: Spontaneous
  Country: US (occurrence: US)
  Receive Date: 20140701
  Receipt Date: 20190514
  Transmission Date: 20190711
  Serious: Yes (Other)
  Sender: FDA-Public Use
  Company Number: US-BAYER-2014-098599

PATIENT
  Age: 23 Year
  Sex: Female
  Weight: 120 kg

DRUGS (5)
  1. ESSURE [Suspect]
     Active Substance: DEVICE
     Indication: FEMALE STERILISATION
     Dosage: UNK
     Dates: start: 20131113, end: 20150129
  2. MIRENA [Suspect]
     Active Substance: LEVONORGESTREL
     Dosage: DAILY DOSE 20 MCG/24HR
  3. DEPO-PROVERA [Concomitant]
     Active Substance: MEDROXYPROGESTERONE ACETATE
  4. LEXAPRO [Concomitant]
     Active Substance: ESCITALOPRAM OXALATE
  5. VITAMINS NOS [Concomitant]
     Active Substance: VITAMINS

REACTIONS (20)
  - Ectopic pregnancy with contraceptive device [Unknown]
  - Dyspareunia [Unknown]
  - Fatigue [Unknown]
  - Genital haemorrhage [Unknown]
  - Depression [Unknown]
  - Pelvic pain [Unknown]
  - Abdominal pain [Not Recovered/Not Resolved]
  - Abortion of ectopic pregnancy [Unknown]
  - Nausea [Unknown]
  - Pyrexia [Unknown]
  - Dyspareunia [Unknown]
  - Vulvovaginal pain [Unknown]
  - Vaginal discharge [Unknown]
  - Dysmenorrhoea [Unknown]
  - Weight increased [Unknown]
  - Abdominal pain lower [Unknown]
  - Device ineffective [Unknown]
  - Allergy to metals [Unknown]
  - Fallopian tube cyst [Unknown]
  - Endometriosis [Unknown]

NARRATIVE: CASE EVENT DATE: 2013
